FAERS Safety Report 5919685-3 (Version None)
Quarter: 2008Q4

REPORT INFORMATION
  Report Type: 
  Country: None (occurrence: None)
  Receive Date: 20081010
  Receipt Date: 20081001
  Transmission Date: 20090506
  Serious: Yes (Other)
  Sender: FDA-Public Use
  Company Number: JP-1167276

PATIENT
  Age: 76 Year
  Sex: Female

DRUGS (4)
  1. VIGAMOX [Suspect]
     Indication: PROPHYLAXIS
     Dosage: 1 GTT OU QID
     Route: 047
     Dates: start: 20080906, end: 20080906
  2. RIZABEN (TRANILAST) [Concomitant]
  3. HYALEIN (HYALURONATE SODIUM) [Concomitant]
  4. XALATAN [Concomitant]

REACTIONS (4)
  - ANAPHYLACTIC SHOCK [None]
  - DIZZINESS [None]
  - PALPITATIONS [None]
  - VERTIGO [None]
